FAERS Safety Report 18208872 (Version 2)
Quarter: 2020Q3

REPORT INFORMATION
  Report Type: Report from Study
  Country: DE (occurrence: DE)
  Receive Date: 20200828
  Receipt Date: 20200905
  Transmission Date: 20201103
  Serious: Yes (Death, Hospitalization, Other)
  Sender: FDA-Public Use
  Company Number: NVSC2019DE030901

PATIENT
  Age: 79 Year
  Sex: Male
  Weight: 90 kg

DRUGS (11)
  1. LOPERAMID [Concomitant]
     Active Substance: LOPERAMIDE
     Indication: DIARRHOEA
     Dosage: UNK UNK, PRN (AS NEEDED)
     Route: 065
     Dates: start: 20190725
  2. EXJADE [Suspect]
     Active Substance: DEFERASIROX
     Indication: IRON OVERLOAD
     Dosage: 360 MG (4 MG/KG BODYWEIGHT/DAY=1 TABLETS ? 360MG)
     Route: 048
     Dates: start: 20190425, end: 20190605
  3. EXJADE [Suspect]
     Active Substance: DEFERASIROX
     Dosage: 360 MG (7.89 MG/KG BODY WEIGHT/DAY EQUAL TO 2 TABLETS 360 MG)
     Route: 048
     Dates: start: 20190606, end: 20190714
  4. HCT [Concomitant]
     Active Substance: HYDROCHLOROTHIAZIDE
     Indication: HYPERTENSION
     Dosage: 12.5 MG, QD (1?0?0)
     Route: 065
  5. ALLOPURINOL. [Concomitant]
     Active Substance: ALLOPURINOL
     Indication: PROPHYLAXIS
     Dosage: 100 MG, QD (1X1 DAILY)
     Route: 065
  6. ATENOLOL. [Concomitant]
     Active Substance: ATENOLOL
     Indication: HYPERTENSION
     Dosage: 50 MG, QD (1?0?0)
     Route: 065
  7. EXJADE [Suspect]
     Active Substance: DEFERASIROX
     Dosage: 360 MG (4.11MG/KG BODYWEIGHT/DAY=1 TABLETS ? 360MG)
     Route: 048
     Dates: start: 20190809, end: 20200819
  8. ENALAPRIL [Concomitant]
     Active Substance: ENALAPRIL
     Indication: HYPERTENSION
     Dosage: 10 MG, QD (1?0?0)
     Route: 065
  9. EPOETIN [Concomitant]
     Active Substance: ERYTHROPOIETIN
     Indication: DIAGNOSTIC PROCEDURE
     Dosage: 40000 IU, QD
     Route: 058
     Dates: start: 20191206
  10. NITRENDIPIN [Concomitant]
     Active Substance: NITRENDIPINE
     Indication: HYPERTENSION
     Dosage: 20 MG, QD (1?0?0)
     Route: 065
  11. XARELTO [Concomitant]
     Active Substance: RIVAROXABAN
     Indication: HYPERTENSION
     Dosage: 20 MG, QD (1X1 DAILY)
     Route: 065

REACTIONS (3)
  - Death [Fatal]
  - Squamous cell carcinoma [Unknown]
  - Pulmonary mass [Recovered/Resolved]

NARRATIVE: CASE EVENT DATE: 20190715
